FAERS Safety Report 23556131 (Version 2)
Quarter: 2024Q2

REPORT INFORMATION
  Report Type: Report from Study
  Country: US (occurrence: US)
  Receive Date: 20240222
  Receipt Date: 20240529
  Transmission Date: 20240716
  Serious: No
  Sender: FDA-Public Use
  Company Number: US-TAKEDA-2024TUS016671

PATIENT
  Sex: Female

DRUGS (4)
  1. TEDUGLUTIDE [Suspect]
     Active Substance: TEDUGLUTIDE
     Indication: Product used for unknown indication
     Dosage: 0.39 MILLILITER, QD
     Route: 058
     Dates: start: 20230909
  2. TEDUGLUTIDE [Suspect]
     Active Substance: TEDUGLUTIDE
     Indication: Product used for unknown indication
     Dosage: 0.39 MILLILITER, QD
     Route: 058
     Dates: start: 20230909
  3. TEDUGLUTIDE [Suspect]
     Active Substance: TEDUGLUTIDE
     Indication: Product used for unknown indication
     Dosage: 0.39 MILLILITER, QD
     Route: 058
     Dates: start: 20230909
  4. TEDUGLUTIDE [Suspect]
     Active Substance: TEDUGLUTIDE
     Indication: Product used for unknown indication
     Dosage: 0.39 MILLILITER, QD
     Route: 058
     Dates: start: 20230909

REACTIONS (4)
  - Chills [Unknown]
  - Muscle spasms [Recovering/Resolving]
  - Gastrointestinal stoma output increased [Unknown]
  - Nausea [Unknown]
